FAERS Safety Report 20506857 (Version 1)
Quarter: 2022Q1

REPORT INFORMATION
  Report Type: Spontaneous
  Country: EC (occurrence: EC)
  Receive Date: 20220223
  Receipt Date: 20220223
  Transmission Date: 20220423
  Serious: Yes (Death, Hospitalization)
  Sender: FDA-Public Use
  Company Number: EC-KOREA IPSEN Pharma-2022-04582

PATIENT
  Age: 69 Year
  Sex: Male

DRUGS (1)
  1. DYSPORT [Suspect]
     Active Substance: ABOBOTULINUMTOXINA
     Indication: Torticollis
     Dosage: 1000 IU
     Route: 030
     Dates: start: 20201208, end: 20201208

REACTIONS (3)
  - Death [Fatal]
  - Loss of consciousness [Unknown]
  - Pneumonia [Unknown]

NARRATIVE: CASE EVENT DATE: 20210601
